FAERS Safety Report 23297611 (Version 1)
Quarter: 2023Q4

REPORT INFORMATION
  Report Type: Spontaneous
  Country: US (occurrence: US)
  Receive Date: 20231214
  Receipt Date: 20231214
  Transmission Date: 20240110
  Serious: No
  Sender: FDA-Public Use
  Company Number: US-JNJFOC-20230635456

PATIENT
  Sex: Female

DRUGS (11)
  1. TYLENOL REGULAR STRENGTH [Suspect]
     Active Substance: ACETAMINOPHEN
     Indication: Product used for unknown indication
     Route: 065
     Dates: start: 200808, end: 200904
  2. TYLENOL EXTRA STRENGTH [Suspect]
     Active Substance: ACETAMINOPHEN
     Indication: Back pain
     Dosage: FORM-CAPSULE, FIRST, SECOND AND THIRD TRIMESTER
     Route: 048
     Dates: start: 200810, end: 200904
  3. TYLENOL EXTRA STRENGTH [Suspect]
     Active Substance: ACETAMINOPHEN
     Dosage: FIRST, SECOND AND THIRD TRIMESTER
     Route: 048
     Dates: start: 200807, end: 200904
  4. TYLENOL [Suspect]
     Active Substance: ACETAMINOPHEN
     Indication: Back pain
     Dosage: 3-6 TIMES PER WEEK, FIRST, SECOND AND THIRD TRIMESTER
     Route: 048
     Dates: start: 200808, end: 200904
  5. TYLENOL [Suspect]
     Active Substance: ACETAMINOPHEN
     Indication: Nasopharyngitis
     Route: 048
     Dates: start: 200809
  6. TYLENOL [Suspect]
     Active Substance: ACETAMINOPHEN
     Indication: Pain
  7. WELLBUTRIN [Concomitant]
     Active Substance: BUPROPION HYDROCHLORIDE
     Indication: Affective disorder
     Route: 065
  8. BUSPIRONE [Concomitant]
     Active Substance: BUSPIRONE HYDROCHLORIDE
     Indication: Affective disorder
     Route: 065
  9. TRAZODONE [Concomitant]
     Active Substance: TRAZODONE HYDROCHLORIDE
     Indication: Affective disorder
     Route: 065
  10. LISINOPRIL [Concomitant]
     Active Substance: LISINOPRIL
     Indication: Hypertension
     Route: 065
  11. ZANTAC [Concomitant]
     Active Substance: RANITIDINE HYDROCHLORIDE
     Indication: Dyspepsia
     Route: 065
     Dates: start: 200901, end: 200904

REACTIONS (1)
  - Exposure during pregnancy [Unknown]

NARRATIVE: CASE EVENT DATE: 20080101
